FAERS Safety Report 6415723-2 (Version None)
Quarter: 2009Q4

REPORT INFORMATION
  Report Type: 
  Country: None (occurrence: None)
  Receive Date: 20091027
  Receipt Date: 20091014
  Transmission Date: 20100525
  Serious: Yes (Other)
  Sender: FDA-Public Use
  Company Number: US-PFIZER INC-2009283923

PATIENT
  Sex: Female

DRUGS (1)
  1. GEODON [Suspect]
     Indication: DEMENTIA
     Dosage: UNK
     Dates: start: 20091001

REACTIONS (5)
  - DELIRIUM [None]
  - HALLUCINATION [None]
  - MEMORY IMPAIRMENT [None]
  - MONOPLEGIA [None]
  - SYNCOPE [None]
